FAERS Safety Report 9257180 (Version 1)
Quarter: 2013Q2

REPORT INFORMATION
  Report Type: Spontaneous
  Country: IE (occurrence: None)
  Receive Date: 20130418
  Receipt Date: 20130418
  Transmission Date: 20140414
  Serious: Yes (Other)
  Sender: FDA-Public Use
  Company Number: ENTC2013-0143

PATIENT
  Age: 53 Year
  Sex: Female

DRUGS (4)
  1. LEVODOPA, CARBIDOPA, ENTACAPONE [Suspect]
     Indication: PARKINSON^S DISEASE
     Dosage: 225 MG (75 MG,5 IN 1 D)
  2. ROPINIROLE (ROPINIROLE) [Suspect]
     Indication: PARKINSON^S DISEASE
  3. AMANTADINE [Suspect]
     Indication: PARKINSON^S DISEASE
     Dosage: 300 MG (100 MG, 3 IN 1 D)
  4. RASAGILINE [Suspect]
     Indication: PARKINSON^S DISEASE

REACTIONS (7)
  - Impulse-control disorder [None]
  - Hypersexuality [None]
  - Compulsive shopping [None]
  - Feeling guilty [None]
  - Autophobia [None]
  - Suicidal ideation [None]
  - Abnormal behaviour [None]
